FAERS Safety Report 7543655-5 (Version None)
Quarter: 2011Q2

REPORT INFORMATION
  Report Type: 
  Country: None (occurrence: None)
  Receive Date: 20110613
  Receipt Date: 20030619
  Transmission Date: 20111010
  Serious: Yes (Death, Hospitalization)
  Sender: FDA-Public Use
  Company Number: PHHO2003AR07907

PATIENT

DRUGS (5)
  1. RITMOCARDIL [Concomitant]
  2. RISPERDAL [Concomitant]
  3. INDERAL [Concomitant]
  4. EXELON [Suspect]
     Indication: DEMENTIA ALZHEIMER'S TYPE
     Dosage: 3 MG, QD
     Route: 048
     Dates: end: 20030501
  5. AMPLIACTIL [Concomitant]

REACTIONS (2)
  - CARDIAC FIBRILLATION [None]
  - APNOEA [None]
